FAERS Safety Report 9146637 (Version 1)
Quarter: 2013Q1

REPORT INFORMATION
  Report Type: Spontaneous
  Country: CH (occurrence: CH)
  Receive Date: 20130307
  Receipt Date: 20130307
  Transmission Date: 20140127
  Serious: Yes (Other)
  Sender: FDA-Public Use
  Company Number: CH-ASTRAZENECA-2013SE14115

PATIENT
  Age: 46 Year
  Sex: Male
  Weight: 110 kg

DRUGS (6)
  1. SEROQUEL XR [Suspect]
     Indication: SCHIZOPHRENIA
     Route: 048
     Dates: start: 2010
  2. URBANYL [Concomitant]
     Route: 048
     Dates: start: 2003
  3. TOPAMAX [Concomitant]
     Dates: start: 2003
  4. ABILIFY [Concomitant]
     Indication: TENSION
     Dates: start: 2005
  5. ABILIFY [Concomitant]
     Indication: AGGRESSION
     Dates: start: 2005
  6. CIPRALEX [Concomitant]
     Dates: start: 2009

REACTIONS (2)
  - Glucose tolerance impaired [Not Recovered/Not Resolved]
  - Weight increased [Not Recovered/Not Resolved]
